FAERS Safety Report 21185935 (Version 1)
Quarter: 2022Q3

REPORT INFORMATION
  Report Type: Spontaneous
  Country: KR (occurrence: KR)
  Receive Date: 20220808
  Receipt Date: 20220808
  Transmission Date: 20221026
  Serious: Yes (Hospitalization)
  Sender: FDA-Public Use
  Company Number: KR-MYLANLABS-2022M1084913

PATIENT
  Age: 47 Year
  Sex: Female

DRUGS (3)
  1. CLOZAPINE [Suspect]
     Active Substance: CLOZAPINE
     Indication: Schizophrenia
     Dosage: UNK
     Route: 065
  2. CLOZAPINE [Suspect]
     Active Substance: CLOZAPINE
     Dosage: 100 MILLIGRAM, SIX MONTHS AFTER HER LAST HOSPITALISATION
     Route: 065
  3. PIPERACILLIN AND TAZOBACTAM [Concomitant]
     Active Substance: PIPERACILLIN SODIUM\TAZOBACTAM SODIUM
     Indication: Antibiotic therapy
     Dosage: 4.5 GRAM, Q6H
     Route: 065

REACTIONS (6)
  - Pneumothorax [Unknown]
  - Atelectasis [Unknown]
  - Streptococcal infection [Recovered/Resolved]
  - Empyema [Recovered/Resolved]
  - Salivary hypersecretion [Unknown]
  - Sedation [Unknown]
